FAERS Safety Report 6180881-4 (Version None)
Quarter: 2009Q2

REPORT INFORMATION
  Report Type: 
  Country: None (occurrence: None)
  Receive Date: 20090506
  Receipt Date: 20090428
  Transmission Date: 20091009
  Serious: No
  Sender: FDA-Public Use
  Company Number: US-ALEXION-A200900290

PATIENT
  Sex: Female

DRUGS (6)
  1. SOLIRIS [Suspect]
     Indication: PAROXYSMAL NOCTURNAL HAEMOGLOBINURIA
     Dosage: 600 MG, QWK
     Route: 042
     Dates: start: 20090113, end: 20090129
  2. SOLIRIS [Suspect]
     Dosage: 600 MG, QWK
     Route: 042
     Dates: start: 20090326, end: 20090421
  3. SOLIRIS [Suspect]
     Dosage: 900 MG, Q2WK
     Route: 042
     Dates: start: 20090428
  4. MORPHINE SULFATE [Concomitant]
     Dosage: UNK
     Dates: start: 20090401
  5. DILAUDID [Concomitant]
     Indication: PAIN
  6. CYCLOBENZAPRINE [Concomitant]
     Dosage: 10 MG, Q8H PRN
     Route: 048

REACTIONS (3)
  - JAUNDICE [None]
  - OCULAR ICTERUS [None]
  - OVARIAN CYST [None]
